FAERS Safety Report 9837215 (Version 1)
Quarter: 2013Q4

REPORT INFORMATION
  Report Type: Spontaneous
  Country: US (occurrence: None)
  Receive Date: 20131121
  Receipt Date: 20131121
  Transmission Date: 20140711
  Serious: No
  Sender: FDA-Public Use
  Company Number: 1000049209

PATIENT
  Sex: Male

DRUGS (1)
  1. TUDORZA PRESSAIR (ACLIDINIUM BROMIDE) (POWDER) [Suspect]
     Route: 055
     Dates: start: 20130924

REACTIONS (1)
  - Dizziness [None]
